FAERS Safety Report 16397120 (Version 1)
Quarter: 2019Q2

REPORT INFORMATION
  Report Type: Spontaneous
  Country: US (occurrence: US)
  Receive Date: 20190606
  Receipt Date: 20190606
  Transmission Date: 20190711
  Serious: No
  Sender: FDA-Public Use
  Company Number: US-GLENMARK PHARMACEUTICALS-2019GMK039722

PATIENT

DRUGS (1)
  1. ESTRADIOL VAGINAL INSERTS USP [Suspect]
     Active Substance: ESTRADIOL
     Indication: POSTOPERATIVE CARE
     Dosage: UNK
     Route: 067

REACTIONS (2)
  - Vaginal discharge [Not Recovered/Not Resolved]
  - Device issue [Unknown]
